FAERS Safety Report 14712359 (Version 1)
Quarter: 2018Q2

REPORT INFORMATION
  Report Type: Spontaneous
  Country: US (occurrence: US)
  Receive Date: 20180404
  Receipt Date: 20180404
  Transmission Date: 20180711
  Serious: No
  Sender: FDA-Public Use
  Company Number: US-CIPLA LTD.-2017US02367

PATIENT

DRUGS (5)
  1. SERTRALINE [Suspect]
     Active Substance: SERTRALINE HYDROCHLORIDE
     Indication: ANXIETY
     Dosage: 100 MG, QD
     Route: 048
     Dates: start: 200205
  2. SERTRALINE [Suspect]
     Active Substance: SERTRALINE HYDROCHLORIDE
     Dosage: 50 MG, QD
     Route: 048
     Dates: start: 201612
  3. SERTRALINE [Suspect]
     Active Substance: SERTRALINE HYDROCHLORIDE
     Dosage: 37.5 MG, QD
     Route: 048
     Dates: start: 201612
  4. SERTRALINE [Suspect]
     Active Substance: SERTRALINE HYDROCHLORIDE
     Dosage: 25 MG, QD
     Route: 048
     Dates: start: 201612, end: 20170118
  5. SERTRALINE [Suspect]
     Active Substance: SERTRALINE HYDROCHLORIDE
     Dosage: 75 MG, QD
     Route: 048
     Dates: start: 201612

REACTIONS (4)
  - Dizziness [Unknown]
  - Insomnia [Unknown]
  - Anxiety [Unknown]
  - Headache [Unknown]

NARRATIVE: CASE EVENT DATE: 20170119
